FAERS Safety Report 4533357-1 (Version None)
Quarter: 2004Q4

REPORT INFORMATION
  Report Type: 
  Country: None (occurrence: None)
  Receive Date: 20041220
  Receipt Date: 20041220
  Transmission Date: 20050328
  Serious: Yes (Other)
  Sender: FDA-Public Use
  Company Number: None

PATIENT
  Sex: Female

DRUGS (2)
  1. CORICIDIN D SRT [Suspect]
     Indication: INTENTIONAL MISUSE
     Dosage: 16 TABLETS ORAL   (DURATION: ONCE)
     Route: 048
  2. CANNABIS [Concomitant]

REACTIONS (6)
  - CONFUSIONAL STATE [None]
  - DRUG ABUSER [None]
  - INTENTIONAL MISUSE [None]
  - INTENTIONAL OVERDOSE [None]
  - NYSTAGMUS [None]
  - VOMITING [None]
